FAERS Safety Report 7720450-5 (Version None)
Quarter: 2011Q3

REPORT INFORMATION
  Report Type: 
  Country: None (occurrence: None)
  Receive Date: 20110830
  Receipt Date: 20110830
  Transmission Date: 20111222
  Serious: Yes (Disabling, Other)
  Sender: FDA-Public Use
  Company Number: None

PATIENT
  Age: 62 Year
  Sex: Female
  Weight: 68.2 kg

DRUGS (1)
  1. FEMARA [Suspect]
     Indication: BREAST CANCER
     Dosage: 2.5 MG DAILY
     Dates: start: 20110101, end: 20110301

REACTIONS (4)
  - FEELING ABNORMAL [None]
  - HYPOAESTHESIA [None]
  - TRIGGER FINGER [None]
  - ARTHRALGIA [None]
